FAERS Safety Report 5748784-4 (Version None)
Quarter: 2008Q2

REPORT INFORMATION
  Report Type: 
  Country: None (occurrence: None)
  Receive Date: 20080521
  Receipt Date: 20080507
  Transmission Date: 20081010
  Serious: Yes (Other)
  Sender: FDA-Public Use
  Company Number: 230002M08AUT

PATIENT
  Sex: Female

DRUGS (4)
  1. REBIF [Suspect]
     Indication: MULTIPLE SCLEROSIS
     Dosage: 22 MCG, 3 IN 1 WEEKS
     Dates: start: 20080101, end: 20080310
  2. DULOXETINE [Concomitant]
  3. LAMOTRIGINE [Concomitant]
  4. CANDESARTAN CILEXETIL [Concomitant]

REACTIONS (1)
  - ANAPHYLACTIC REACTION [None]
